FAERS Safety Report 4893097-6 (Version None)
Quarter: 2005Q4

REPORT INFORMATION
  Report Type: 
  Country: None (occurrence: None)
  Receive Date: 20051223
  Receipt Date: 20050907
  Transmission Date: 20060501
  Serious: Yes (Hospitalization)
  Sender: FDA-Public Use
  Company Number: 217611

PATIENT
  Age: 44 Year
  Sex: Male

DRUGS (4)
  1. AVASTIN [Suspect]
     Indication: COLORECTAL CANCER
     Dosage: 5 MG/KG
     Dates: start: 20050901
  2. IRINOTECAN HCL [Concomitant]
  3. FLUOROURACIL [Concomitant]
  4. LEUCOVORIN CALCIUM [Concomitant]

REACTIONS (1)
  - THROMBOSIS [None]
